FAERS Safety Report 8981268 (Version 2)
Quarter: 2013Q1

REPORT INFORMATION
  Report Type: Spontaneous
  Country: BR (occurrence: BR)
  Receive Date: 20121221
  Receipt Date: 20130311
  Transmission Date: 20140127
  Serious: Yes (Hospitalization, Other)
  Sender: FDA-Public Use
  Company Number: BR-NOVOPROD-367276

PATIENT
  Sex: Female
  Weight: 78 kg

DRUGS (8)
  1. VICTOZA [Suspect]
     Indication: TYPE 2 DIABETES MELLITUS
     Dosage: 0.6 MG, QD
     Route: 058
     Dates: start: 201208, end: 201212
  2. VICTOZA [Suspect]
     Indication: WEIGHT DECREASED
     Dosage: 1.2 MG, QD
     Route: 058
     Dates: end: 201212
  3. LEVEMIR FLEXPEN [Concomitant]
     Indication: TYPE 2 DIABETES MELLITUS
     Dosage: 28 U, UNK
     Route: 058
     Dates: start: 20100226
  4. EUTHYROX [Concomitant]
     Indication: HYPOTHYROIDISM
     Dosage: 1 TAB, UNK
     Route: 048
  5. DIOVAN [Concomitant]
     Indication: HYPERTENSION
     Dosage: 1 TAB, UNK
     Route: 048
  6. JANUVIA [Concomitant]
     Indication: TYPE 2 DIABETES MELLITUS
     Dosage: 1 TAB, UNK
     Route: 048
  7. DIAMICRON [Concomitant]
     Indication: TYPE 2 DIABETES MELLITUS
     Dosage: 4 TAB, UNK
     Route: 048
  8. METFORMIN [Concomitant]
     Indication: TYPE 2 DIABETES MELLITUS
     Dosage: 4 TAB, UNK
     Route: 048

REACTIONS (3)
  - Pancreatitis [Unknown]
  - Benign pancreatic neoplasm [Unknown]
  - Cataract [Unknown]
